FAERS Safety Report 10273069 (Version 1)
Quarter: 2014Q3

REPORT INFORMATION
  Report Type: Report from Study
  Country: IT (occurrence: IT)
  Receive Date: 20140702
  Receipt Date: 20140702
  Transmission Date: 20150326
  Serious: Yes (Other)
  Sender: FDA-Public Use
  Company Number: IT-BAYER-2014-093711

PATIENT
  Age: 65 Year

DRUGS (1)
  1. SORAFENIB [Suspect]
     Active Substance: SORAFENIB
     Indication: HEPATOCELLULAR CARCINOMA
     Route: 048

REACTIONS (5)
  - Hyperbilirubinaemia [None]
  - Diarrhoea [None]
  - Hypertransaminasaemia [None]
  - Cholestasis [None]
  - Hypothyroidism [None]
